FAERS Safety Report 23197218 (Version 1)
Quarter: 2023Q4

REPORT INFORMATION
  Report Type: Report from Study
  Country: GT (occurrence: GT)
  Receive Date: 20231117
  Receipt Date: 20231117
  Transmission Date: 20240109
  Serious: Yes (Death)
  Sender: FDA-Public Use
  Company Number: GT-BAYER-2023A160107

PATIENT
  Age: 69 Year
  Sex: Male

DRUGS (1)
  1. NEXAVAR [Suspect]
     Active Substance: SORAFENIB
     Indication: Hepatocellular carcinoma
     Dosage: 200 MG, BID
     Dates: start: 20230925, end: 202310

REACTIONS (2)
  - Hepatic failure [Fatal]
  - Off label use [None]

NARRATIVE: CASE EVENT DATE: 20230925
